FAERS Safety Report 4618352-6 (Version None)
Quarter: 2005Q1

REPORT INFORMATION
  Report Type: 
  Country: None (occurrence: None)
  Receive Date: 20050324
  Receipt Date: 20041111
  Transmission Date: 20050727
  Serious: Yes (Hospitalization)
  Sender: FDA-Public Use
  Company Number: DE-MERCK-0411DEU00234

PATIENT
  Age: 60 Year
  Sex: Female

DRUGS (9)
  1. VIOXX [Suspect]
     Indication: POST PROCEDURAL PAIN
     Route: 048
     Dates: start: 20000101, end: 20031101
  2. DICLOFENAC SODIUM [Concomitant]
     Route: 048
     Dates: start: 20031101
  3. INSULIN, BIPHASIC ISOPHANE [INJECTION] [Concomitant]
     Route: 051
     Dates: start: 20020801
  4. REPAGLINIDE [Concomitant]
     Route: 065
     Dates: start: 20010101
  5. TETRAZEPAM [Concomitant]
     Route: 065
     Dates: start: 20010101
  6. METFORMIN HYDROCHLORIDE [Concomitant]
     Route: 048
     Dates: start: 20031001
  7. MAGNESIUM (UNSPECIFIED) [Concomitant]
     Route: 048
     Dates: start: 20031001
  8. TOLPERISONE HYDROCHLORIDE [Concomitant]
     Route: 065
     Dates: start: 20031001
  9. THIOCTIC ACID [Concomitant]
     Route: 048
     Dates: start: 20031001

REACTIONS (1)
  - MYOCARDIAL INFARCTION [None]
